FAERS Safety Report 17655379 (Version 1)
Quarter: 2020Q2

REPORT INFORMATION
  Report Type: Other
  Country: FR (occurrence: FR)
  Receive Date: 20200410
  Receipt Date: 20200410
  Transmission Date: 20200713
  Serious: Yes (Other)
  Sender: FDA-Public Use
  Company Number: FR-GE HEALTHCARE LIFE SCIENCES-2020CSU001408

PATIENT

DRUGS (4)
  1. VISIPAQUE [Suspect]
     Active Substance: IODIXANOL
     Indication: ARTHROPATHY
  2. XYLOCAINE WITH EPINEPHRINE [Suspect]
     Active Substance: EPINEPHRINE BITARTRATE\LIDOCAINE HYDROCHLORIDE
     Indication: LOCAL ANAESTHESIA
     Dosage: 15 ML
     Route: 050
     Dates: start: 20200129, end: 20200129
  3. VISIPAQUE [Suspect]
     Active Substance: IODIXANOL
     Indication: DIAGNOSTIC PROCEDURE
     Dosage: 1 ML, SINGLE
     Route: 014
     Dates: start: 20200129, end: 20200129
  4. KENACORT [Suspect]
     Active Substance: TRIAMCINOLONE
     Indication: ARTHROPATHY
     Dosage: 2 ML
     Route: 014
     Dates: start: 20200129, end: 20200129

REACTIONS (2)
  - Transient ischaemic attack [Recovered/Resolved]
  - Off label use [Recovered/Resolved]

NARRATIVE: CASE EVENT DATE: 20200129
